FAERS Safety Report 8401742-3 (Version None)
Quarter: 2012Q2

REPORT INFORMATION
  Report Type: 
  Country: None (occurrence: None)
  Receive Date: 20120601
  Receipt Date: 20120523
  Transmission Date: 20120825
  Serious: Yes (Other)
  Sender: FDA-Public Use
  Company Number: IL-SANOFI-AVENTIS-2012SA034049

PATIENT
  Age: 60 Year
  Sex: Female

DRUGS (3)
  1. ARAVA [Suspect]
     Route: 065
     Dates: end: 20020701
  2. ARAVA [Suspect]
     Dosage: DURATION: 1-2 WEEKS
     Route: 065
     Dates: start: 20020901
  3. ARAVA [Suspect]
     Indication: RHEUMATOID ARTHRITIS
     Dosage: LOADING DOSE OF 100 MG FOR 3 DAYS
     Route: 065
     Dates: start: 20010315

REACTIONS (5)
  - PANCREATITIS RELAPSING [None]
  - ABDOMINAL PAIN [None]
  - AMYLASE INCREASED [None]
  - NEPHROLITHIASIS [None]
  - VOMITING [None]
